FAERS Safety Report 9012973 (Version 1)
Quarter: 2013Q1

REPORT INFORMATION
  Report Type: Spontaneous
  Country: US (occurrence: US)
  Receive Date: 20130115
  Receipt Date: 20130115
  Transmission Date: 20140127
  Serious: Yes (Other)
  Sender: FDA-Public Use
  Company Number: US-009507513-0909USA03490

PATIENT
  Age: 27 Year
  Sex: Female
  Weight: 58.97 kg

DRUGS (2)
  1. SINGULAIR [Suspect]
     Indication: ASTHMA
     Dosage: 10 MG, QD
     Route: 048
     Dates: start: 20090201, end: 20090307
  2. SINGULAIR [Suspect]
     Indication: SEASONAL ALLERGY

REACTIONS (5)
  - Emotional disorder [Unknown]
  - Mood swings [Unknown]
  - Depression [Unknown]
  - Somnolence [Unknown]
  - Fatigue [Unknown]
